FAERS Safety Report 8439330-5 (Version None)
Quarter: 2012Q2

REPORT INFORMATION
  Report Type: 
  Country: None (occurrence: None)
  Receive Date: 20120608
  Receipt Date: 20120528
  Transmission Date: 20120825
  Serious: Yes (Other)
  Sender: FDA-Public Use
  Company Number: DSA_57680_2012

PATIENT

DRUGS (5)
  1. LEVOLEUCOVORIN CALCIUM [Suspect]
     Indication: HEPATIC NEOPLASM MALIGNANT
     Dosage: 6.25 MG DAILY INTRA-ARTERIAL
     Route: 013
  2. CISPLATIN [Suspect]
     Indication: HEPATIC NEOPLASM MALIGNANT
     Dosage: 10 MG DAILY INTRA-ARTERIAL
     Route: 013
  3. INTRON A [Suspect]
     Indication: HEPATIC NEOPLASM MALIGNANT
     Dosage: 3 MILLIUNIT(S) (3 TIMES WEEKLY) SUBCUTANEOUS
     Route: 058
  4. FLUOROURACIL [Suspect]
     Indication: HEPATIC NEOPLASM MALIGNANT
     Dosage: 250 MG, DAILY INTRA-ARTERIAL, 250 MG, DAILY INTRA-ARTERIAL
     Route: 013
  5. ONDANSETRON HCL [Concomitant]

REACTIONS (1)
  - NEUTROPENIA [None]
